FAERS Safety Report 4354452-6 (Version None)
Quarter: 2004Q2

REPORT INFORMATION
  Report Type: 
  Country: None (occurrence: None)
  Receive Date: 20040503
  Receipt Date: 20040420
  Transmission Date: 20050107
  Serious: Yes (Hospitalization)
  Sender: FDA-Public Use
  Company Number: 2004026973

PATIENT
  Sex: Male

DRUGS (4)
  1. MINIPRESS [Suspect]
     Indication: HYPERTENSION
     Dosage: 5 MG (BID)
  2. CHLORTALIDONE (CHLORATALIDONE) [Concomitant]
  3. CALCIUM CHANNEL BLOCKERS (CALCIUM CHANNEL BLOCKERS) [Concomitant]
  4. PRAZOSIN HYDROCHLORIDE (PRAZOSIN HYDROCHLORIDE) [Concomitant]

REACTIONS (2)
  - BLOOD PRESSURE ABNORMAL [None]
  - BLOOD PRESSURE DECREASED [None]
